FAERS Safety Report 22062352 (Version 1)
Quarter: 2023Q1

REPORT INFORMATION
  Report Type: Spontaneous
  Country: US (occurrence: US)
  Receive Date: 20230305
  Receipt Date: 20230305
  Transmission Date: 20230418
  Serious: No
  Sender: FDA-Public Use
  Company Number: US-009507513-2302USA002846

PATIENT
  Sex: Male

DRUGS (1)
  1. MOLNUPIRAVIR [Suspect]
     Active Substance: MOLNUPIRAVIR
     Dosage: TAKEN FOR FIVE DAYS
     Route: 048
     Dates: start: 20230109, end: 20230113

REACTIONS (1)
  - Cough [Unknown]

NARRATIVE: CASE EVENT DATE: 20230101
